FAERS Safety Report 6231058-5 (Version None)
Quarter: 2009Q2

REPORT INFORMATION
  Report Type: 
  Country: None (occurrence: None)
  Receive Date: 20090611
  Receipt Date: 20090312
  Transmission Date: 20091009
  Serious: Yes (Hospitalization)
  Sender: FDA-Public Use
  Company Number: 2009SP005821

PATIENT
  Age: 46 Year
  Sex: Female
  Weight: 84 kg

DRUGS (8)
  1. BETAMETHASONE [Suspect]
     Indication: BRONCHITIS
     Dosage: INH
     Route: 055
     Dates: start: 20090121, end: 20090129
  2. NETROMYCIN [Suspect]
     Indication: BRONCHITIS
     Dosage: INH
     Route: 055
     Dates: start: 20090121, end: 20090129
  3. PAROXETINE HYDROCHLORIDE [Suspect]
     Indication: DRUG USE FOR UNKNOWN INDICATION
     Dosage: 40 MG; QD; PO, 20 MG; QD; PO
     Route: 048
     Dates: start: 20071001
  4. PAROXETINE HYDROCHLORIDE [Suspect]
     Indication: DRUG USE FOR UNKNOWN INDICATION
     Dosage: 40 MG; QD; PO, 20 MG; QD; PO
     Route: 048
     Dates: start: 20090101
  5. TRIPTORELIN PAMOATE [Suspect]
     Indication: BREAST CANCER
     Dosage: 0.011 DF; QID; IM
     Route: 030
     Dates: start: 20060101, end: 20081101
  6. ABUFENE (BETA-ALANINE) [Suspect]
     Indication: DRUG USE FOR UNKNOWN INDICATION
     Dosage: PO
     Route: 048
     Dates: start: 20060101
  7. SURBRONC (AMBROXOL HYDROCHLORIDE) [Suspect]
     Indication: BRONCHITIS
     Dosage: INH
     Route: 055
     Dates: start: 20090121, end: 20090129
  8. GOMENOL (CON.) [Concomitant]

REACTIONS (4)
  - DRUG TOXICITY [None]
  - INCORRECT ROUTE OF DRUG ADMINISTRATION [None]
  - SPINAL MYELOGRAM ABNORMAL [None]
  - THROMBOCYTOPENIA [None]
